FAERS Safety Report 17116802 (Version 2)
Quarter: 2020Q1

REPORT INFORMATION
  Report Type: Spontaneous
  Country: US (occurrence: US)
  Receive Date: 20191205
  Receipt Date: 20200309
  Transmission Date: 20200409
  Serious: No
  Sender: FDA-Public Use
  Company Number: US-TEVA-2019-US-1147511

PATIENT
  Sex: Male

DRUGS (2)
  1. QVAR REDIHALER [Suspect]
     Active Substance: BECLOMETHASONE DIPROPIONATE
     Indication: ASTHMA
     Route: 065
     Dates: start: 201901, end: 201912
  2. ALBUTEROL. [Suspect]
     Active Substance: ALBUTEROL
     Route: 065

REACTIONS (6)
  - Candida infection [Recovered/Resolved]
  - Burning sensation [Recovered/Resolved]
  - Burning sensation mucosal [Recovered/Resolved]
  - Oral discomfort [Not Recovered/Not Resolved]
  - Aphthous ulcer [Recovered/Resolved]
  - Product taste abnormal [Unknown]
